FAERS Safety Report 4330347-9 (Version None)
Quarter: 2004Q1

REPORT INFORMATION
  Report Type: 
  Country: None (occurrence: None)
  Receive Date: 20040329
  Receipt Date: 20040318
  Transmission Date: 20041129
  Serious: Yes (Hospitalization)
  Sender: FDA-Public Use
  Company Number: 2004019533

PATIENT
  Age: 57 Year
  Sex: Male

DRUGS (2)
  1. ATORVASTATIN (ATORVASTATIN) [Suspect]
     Indication: DYSLIPIDAEMIA
     Dosage: 10 MG DAILY, ORAL
     Route: 048
  2. ATENOLOL [Concomitant]

REACTIONS (2)
  - BLADDER NEOPLASM [None]
  - SURGICAL PROCEDURE REPEATED [None]
